FAERS Safety Report 21334627 (Version 1)
Quarter: 2022Q3

REPORT INFORMATION
  Report Type: Spontaneous
  Country: US (occurrence: US)
  Receive Date: 20220914
  Receipt Date: 20220914
  Transmission Date: 20221027
  Serious: No
  Sender: FDA-Public Use
  Company Number: US-MYLANLABS-2022M1088440

PATIENT

DRUGS (1)
  1. WIXELA INHUB [Suspect]
     Active Substance: FLUTICASONE PROPIONATE\SALMETEROL XINAFOATE
     Indication: Product used for unknown indication
     Dosage: 500/50 MICROGRAM
     Route: 055

REACTIONS (5)
  - Dyspnoea [Unknown]
  - Dysphonia [Unknown]
  - Lethargy [Unknown]
  - Aphasia [Unknown]
  - Device dependence [Unknown]
